FAERS Safety Report 13877065 (Version 1)
Quarter: 2017Q3

REPORT INFORMATION
  Report Type: Report from Study
  Country: US (occurrence: US)
  Receive Date: 20170817
  Receipt Date: 20170817
  Transmission Date: 20171127
  Serious: Yes (Other)
  Sender: FDA-Public Use
  Company Number: US-JNJFOC-20170202806

PATIENT
  Sex: Female

DRUGS (3)
  1. IMBRUVICA [Suspect]
     Active Substance: IBRUTINIB
     Indication: WALDENSTROM^S MACROGLOBULINAEMIA
     Route: 048
     Dates: start: 20160229
  2. HYDRALAZINE [Concomitant]
     Active Substance: HYDRALAZINE HYDROCHLORIDE
  3. AMLODIPINE BESILATE W/VALSARTAN [Concomitant]
     Active Substance: AMLODIPINE BESYLATE\VALSARTAN

REACTIONS (4)
  - Off label use [Unknown]
  - Product use issue [Unknown]
  - Cold type haemolytic anaemia [Unknown]
  - Peripheral vascular disorder [Unknown]
